FAERS Safety Report 14818586 (Version 1)
Quarter: 2018Q2

REPORT INFORMATION
  Report Type: Spontaneous
  Country: US (occurrence: US)
  Receive Date: 20180427
  Receipt Date: 20180427
  Transmission Date: 20180711
  Serious: Yes (Hospitalization, Other)
  Sender: FDA-Public Use
  Company Number: US-TEVA-2018-US-887699

PATIENT
  Sex: Male
  Weight: 109 kg

DRUGS (1)
  1. SYNRIBO [Suspect]
     Active Substance: OMACETAXINE MEPESUCCINATE
     Indication: CHRONIC MYELOID LEUKAEMIA
     Route: 065
     Dates: start: 201510, end: 20151222

REACTIONS (3)
  - Biopsy bone marrow [Unknown]
  - Haemoglobin decreased [Unknown]
  - White blood cell count decreased [Unknown]
